FAERS Safety Report 17654855 (Version 2)
Quarter: 2020Q2

REPORT INFORMATION
  Report Type: Spontaneous
  Country: US (occurrence: US)
  Receive Date: 20200410
  Receipt Date: 20200429
  Transmission Date: 20200713
  Serious: Yes (Death)
  Sender: FDA-Public Use
  Company Number: US-PFIZER INC-2020001584

PATIENT
  Age: 82 Year
  Sex: Male

DRUGS (1)
  1. INLYTA [Suspect]
     Active Substance: AXITINIB
     Indication: RENAL CANCER
     Dosage: 12 MG, DAILY (1- 5 MG TABLET TWICE DAILY AND 1 MG TAB TWICE DAILY)
     Route: 048

REACTIONS (1)
  - Death [Fatal]
